FAERS Safety Report 8798864 (Version 1)
Quarter: 2012Q4

REPORT INFORMATION
  Report Type: 
  Country: FR (occurrence: FR)
  Receive Date: 20120920
  Receipt Date: 20120920
  Transmission Date: 20130627
  Serious: Yes (Hospitalization)
  Sender: FDA-Public Use
  Company Number: FR-GLAXOSMITHKLINE-B0829173A

PATIENT
  Age: 89 Year
  Sex: Male

DRUGS (8)
  1. DEROXAT [Suspect]
     Indication: DEPRESSION
     Route: 048
     Dates: start: 201207
  2. COOLMETEC [Concomitant]
     Route: 065
  3. PARIET [Concomitant]
     Route: 065
  4. ZANIDIP [Concomitant]
     Route: 065
  5. PLAVIX [Concomitant]
     Route: 065
  6. SEREVENT [Concomitant]
     Route: 065
  7. VASTAREL [Concomitant]
     Route: 065
  8. TRANSIPEG [Concomitant]
     Route: 065

REACTIONS (3)
  - Hyponatraemia [Recovered/Resolved]
  - General physical health deterioration [Unknown]
  - Hypochloraemia [Unknown]
